FAERS Safety Report 4896959-9 (Version None)
Quarter: 2006Q1

REPORT INFORMATION
  Report Type: 
  Country: None (occurrence: None)
  Receive Date: 20060127
  Receipt Date: 20060109
  Transmission Date: 20060701
  Serious: Yes (Other)
  Sender: FDA-Public Use
  Company Number: DE200601001222

PATIENT
  Age: 70 Year
  Sex: Male

DRUGS (1)
  1. FLUCTIN (FLUOXETINE HYDROCHLORIDE) CAPSULE [Suspect]
     Dosage: DAILY (1/D), ORAL
     Route: 048
     Dates: start: 20051209, end: 20051216

REACTIONS (8)
  - AGITATION [None]
  - ANXIETY [None]
  - CONFUSIONAL STATE [None]
  - DEPERSONALISATION [None]
  - DYSPHAGIA [None]
  - HAEMORRHAGE [None]
  - PANIC ATTACK [None]
  - PHARYNGITIS [None]
